FAERS Safety Report 22056670 (Version 2)
Quarter: 2023Q2

REPORT INFORMATION
  Report Type: Spontaneous
  Country: US (occurrence: US)
  Receive Date: 20230302
  Receipt Date: 20230425
  Transmission Date: 20230721
  Serious: Yes (Hospitalization, Other)
  Sender: FDA-Public Use
  Company Number: US-NOVOPROD-1027258

PATIENT
  Age: 65 Year
  Sex: Female
  Weight: 109.76 kg

DRUGS (1)
  1. OZEMPIC [Suspect]
     Active Substance: SEMAGLUTIDE
     Indication: Type 2 diabetes mellitus
     Dosage: 1 MG
     Route: 058
     Dates: start: 20220825

REACTIONS (7)
  - Hyperparathyroidism [Unknown]
  - Hypercalcaemia [Unknown]
  - Acute kidney injury [Unknown]
  - Pancytopenia [Unknown]
  - Benign neoplasm of thyroid gland [Unknown]
  - Parathyroid tumour benign [Unknown]
  - Lymphadenopathy [Unknown]

NARRATIVE: CASE EVENT DATE: 20230104
